FAERS Safety Report 8798725 (Version 5)
Quarter: 2012Q4

REPORT INFORMATION
  Report Type: 
  Country: US (occurrence: US)
  Receive Date: 20120920
  Receipt Date: 20121107
  Transmission Date: 20130627
  Serious: Yes (Hospitalization, Other)
  Sender: FDA-Public Use
  Company Number: US-ALEXION-A201201736

PATIENT
  Age: 67 None
  Sex: Female

DRUGS (11)
  1. SOLIRIS 300MG [Suspect]
     Indication: PAROXYSMAL NOCTURNAL HAEMOGLOBINURIA
     Dosage: 600 mg, qw
     Route: 042
     Dates: start: 20110912, end: 20111003
  2. SOLIRIS 300MG [Suspect]
     Dosage: 900 mg, q2w
     Route: 042
     Dates: start: 20111010
  3. ALLOPURINOL [Concomitant]
     Dosage: 300 mg, bid
     Route: 048
  4. ASPIRIN [Concomitant]
     Dosage: 81 mg, qd
     Route: 048
  5. BENTYL [Concomitant]
     Indication: PELVIC DISCOMFORT
     Dosage: 10 mg, qid
     Route: 048
  6. CYCLOSPORINE [Concomitant]
     Dosage: 25 mg, tid
     Route: 048
  7. FOLIC ACID [Concomitant]
     Dosage: UNK, qd
     Route: 048
  8. HYDROCHLOROTHIAZIDE [Concomitant]
     Dosage: 12.5 mg, qd
     Route: 048
  9. LISINOPRIL [Concomitant]
     Dosage: 20 mg, qd
     Route: 048
  10. TRIMO-SAN [Concomitant]
     Dosage: UNK
     Route: 067
  11. VALTREX [Concomitant]
     Dosage: 1000 mg, qd
     Route: 048

REACTIONS (7)
  - Metastases to muscle [Not Recovered/Not Resolved]
  - Radiation sickness syndrome [Unknown]
  - Endometrial cancer recurrent [Not Recovered/Not Resolved]
  - Neoplasm malignant [Unknown]
  - Pain in extremity [Recovering/Resolving]
  - Anaemia [Unknown]
  - Mass [Unknown]
